FAERS Safety Report 5081035-5 (Version None)
Quarter: 2006Q3

REPORT INFORMATION
  Report Type: 
  Country: None (occurrence: None)
  Receive Date: 20060810
  Receipt Date: 20060728
  Transmission Date: 20061208
  Serious: Yes (Hospitalization)
  Sender: FDA-Public Use
  Company Number: 2006093317

PATIENT
  Age: 60 Year

DRUGS (4)
  1. DOXORUBICIN HYDROCHLORIDE [Suspect]
     Indication: DRUG USE FOR UNKNOWN INDICATION
     Dosage: 95 MG, INTRAVENOUS
     Route: 042
     Dates: start: 20051005
  2. CYCLOPHOSPHAMIDE [Suspect]
     Indication: DRUG USE FOR UNKNOWN INDICATION
     Dosage: 950 MG, INTRAVENOUS
     Route: 042
     Dates: start: 20051005
  3. DOCETAXEL [Suspect]
     Indication: DRUG USE FOR UNKNOWN INDICATION
     Dosage: 142.5 MG, INTRAVENOUS
     Route: 042
     Dates: start: 20050105
  4. ARANESP [Suspect]
     Indication: ANAEMIA OF MALIGNANT DISEASE
     Dosage: 500 MCG, 1 IN 21 DAYS, SUBCUTANEOUS
     Route: 058
     Dates: start: 20050824, end: 20051005

REACTIONS (5)
  - AXILLARY VEIN THROMBOSIS [None]
  - CATHETER SITE RELATED REACTION [None]
  - PAGET-SCHROETTER SYNDROME [None]
  - PARATHYROID DISORDER [None]
  - SWELLING [None]
